FAERS Safety Report 6202500-0 (Version None)
Quarter: 2009Q2

REPORT INFORMATION
  Report Type: 
  Country: None (occurrence: None)
  Receive Date: 20090526
  Receipt Date: 20080701
  Transmission Date: 20091009
  Serious: No
  Sender: FDA-Public Use
  Company Number: A0732053A

PATIENT
  Age: 57 Year
  Sex: Male

DRUGS (10)
  1. LANOXICAPS [Suspect]
     Indication: ATRIAL FIBRILLATION
     Dosage: .1MG SIX TIMES PER DAY
     Route: 048
     Dates: end: 20080501
  2. DIGOXIN [Suspect]
     Indication: ATRIAL FIBRILLATION
  3. LISINOPRIL [Concomitant]
  4. POTASSIUM CHLORIDE [Concomitant]
  5. GLIMEPIRIDE [Concomitant]
  6. ACTOS [Concomitant]
  7. BUMETANIDE [Concomitant]
  8. COUMADIN [Concomitant]
  9. TRICOR [Concomitant]
  10. ALLOPURINOL [Concomitant]

REACTIONS (2)
  - DRUG INEFFECTIVE [None]
  - PRODUCT QUALITY ISSUE [None]
